FAERS Safety Report 17063429 (Version 4)
Quarter: 2021Q3

REPORT INFORMATION
  Report Type: Spontaneous
  Country: JP (occurrence: JP)
  Receive Date: 20191122
  Receipt Date: 20210915
  Transmission Date: 20211014
  Serious: Yes (Death)
  Sender: FDA-Public Use
  Company Number: JP-EISAI MEDICAL RESEARCH-EC-2019-065753

PATIENT
  Age: 53 Year
  Sex: Female

DRUGS (13)
  1. LENVATINIB [Suspect]
     Active Substance: LENVATINIB
     Route: 048
  2. LENVATINIB [Suspect]
     Active Substance: LENVATINIB
     Route: 050
  3. LENVATINIB [Suspect]
     Active Substance: LENVATINIB
     Route: 050
  4. LENVATINIB [Suspect]
     Active Substance: LENVATINIB
     Route: 048
  5. LENVATINIB [Suspect]
     Active Substance: LENVATINIB
     Indication: ANAPLASTIC THYROID CANCER
     Route: 050
  6. LENVATINIB [Suspect]
     Active Substance: LENVATINIB
     Route: 048
  7. LENVATINIB [Suspect]
     Active Substance: LENVATINIB
     Route: 050
  8. NEXAVAR [Concomitant]
     Active Substance: SORAFENIB
     Route: 065
  9. LENVATINIB [Suspect]
     Active Substance: LENVATINIB
     Route: 048
  10. LENVATINIB [Suspect]
     Active Substance: LENVATINIB
     Route: 048
  11. LENVATINIB [Suspect]
     Active Substance: LENVATINIB
     Route: 048
  12. LENVATINIB [Suspect]
     Active Substance: LENVATINIB
     Route: 048
  13. LENVATINIB [Suspect]
     Active Substance: LENVATINIB
     Route: 048

REACTIONS (7)
  - Tumour haemorrhage [Fatal]
  - Wrong technique in product usage process [Fatal]
  - Oesophageal fistula [Unknown]
  - Incorrect route of product administration [Fatal]
  - Hypertension [Unknown]
  - Proteinuria [Unknown]
  - Decreased appetite [Unknown]
